FAERS Safety Report 21305471 (Version 1)
Quarter: 2022Q3

REPORT INFORMATION
  Report Type: Spontaneous
  Country: NL (occurrence: NL)
  Receive Date: 20220908
  Receipt Date: 20220908
  Transmission Date: 20221027
  Serious: Yes (Hospitalization, Other)
  Sender: FDA-Public Use
  Company Number: NL-LRB-00827288

PATIENT
  Sex: Female

DRUGS (3)
  1. ETHINYL ESTRADIOL\LEVONORGESTREL [Suspect]
     Active Substance: ETHINYL ESTRADIOL\LEVONORGESTREL
     Indication: Heavy menstrual bleeding
     Dosage: 1 DOSAGE FORM, ONCE A DAY (1 X PER DAY 1 PIECE, 3 WEEKS - 1 STOP WEEK)
     Route: 065
     Dates: start: 20180608, end: 20181223
  2. BUDESONIDE [Concomitant]
     Active Substance: BUDESONIDE
     Indication: Product used for unknown indication
     Dosage: 200 MICROGRAM (AEROSOL, 200 ?G/DOSE (MICROGRAMS PER DOSE))
     Route: 065
  3. ALBUTEROL [Concomitant]
     Active Substance: ALBUTEROL
     Indication: Product used for unknown indication
     Dosage: 100 MICROGRAM (AEROSOL, 100 ?G/DOSE (MICROGRAMS PER DOSE))
     Route: 065

REACTIONS (2)
  - Pulmonary embolism [Recovered/Resolved]
  - Product substitution issue [Unknown]
